FAERS Safety Report 23382340 (Version 1)
Quarter: 2024Q1

REPORT INFORMATION
  Report Type: Spontaneous
  Country: BE (occurrence: BE)
  Receive Date: 20240109
  Receipt Date: 20240109
  Transmission Date: 20240409
  Serious: Yes (Life-Threatening, Hospitalization, Other)
  Sender: FDA-Public Use
  Company Number: BE-002147023-NVSC2023BE272236

PATIENT
  Age: 70 Year
  Sex: Male

DRUGS (3)
  1. CARBAMAZEPINE [Interacting]
     Active Substance: CARBAMAZEPINE
     Indication: Epilepsy
     Dosage: UNK UNK, QD
     Route: 065
  2. TICAGRELOR [Interacting]
     Active Substance: TICAGRELOR
     Indication: Antiplatelet therapy
     Dosage: 180 MG, Q12H
     Route: 065
  3. ASPIRIN [Concomitant]
     Active Substance: ASPIRIN
     Indication: Antiplatelet therapy
     Dosage: 100 MG, QD
     Route: 065

REACTIONS (9)
  - Drug interaction [Recovered/Resolved]
  - Angina pectoris [Recovered/Resolved]
  - Coronary artery stenosis [Recovered/Resolved]
  - Acute coronary syndrome [Recovered/Resolved]
  - Cardiogenic shock [Recovered/Resolved]
  - Drug level decreased [Recovered/Resolved]
  - Vascular stent thrombosis [Recovered/Resolved]
  - Acute myocardial infarction [Recovered/Resolved]
  - Myocardial infarction [Recovered/Resolved]
